FAERS Safety Report 13999774 (Version 2)
Quarter: 2017Q4

REPORT INFORMATION
  Report Type: Spontaneous
  Country: GB (occurrence: GB)
  Receive Date: 20170922
  Receipt Date: 20171130
  Transmission Date: 20180321
  Serious: Yes (Other)
  Sender: FDA-Public Use
  Company Number: GB-AMGEN-GBRSP2017141348

PATIENT
  Age: 75 Year
  Sex: Female

DRUGS (3)
  1. PROLIA [Suspect]
     Active Substance: DENOSUMAB
     Indication: OSTEOPOROSIS
     Dosage: UNK UNK, Q6MO
     Route: 065
     Dates: start: 20130422, end: 20170914
  2. ADCAL [Concomitant]
     Active Substance: CALCIUM CARBONATE
  3. COLECALCIFEROL [Concomitant]
     Active Substance: CHOLECALCIFEROL
     Dosage: UNK UNK, QWK
     Dates: start: 20170724, end: 20170925

REACTIONS (8)
  - Cellulitis [Recovered/Resolved]
  - Scar [Recovered/Resolved]
  - Blister [Recovered/Resolved]
  - Inflammation [Recovered/Resolved]
  - Eczema infected [Recovered/Resolved]
  - Fracture [Recovered/Resolved]
  - Neoplasm malignant [Unknown]
  - Rash [Recovered/Resolved]

NARRATIVE: CASE EVENT DATE: 2013
